FAERS Safety Report 5136930-5 (Version None)
Quarter: 2006Q4

REPORT INFORMATION
  Report Type: 
  Country: None (occurrence: None)
  Receive Date: 20061023
  Receipt Date: 20061011
  Transmission Date: 20070319
  Serious: Yes (Other)
  Sender: FDA-Public Use
  Company Number: 2006125414

PATIENT
  Age: 76 Year
  Sex: Female

DRUGS (4)
  1. CARDURA XL (EXTENDED RELEAS) (DOXAZOSIN) [Suspect]
     Indication: HYPERTENSION
     Dosage: 4 MG (4 MG, FREQUENCY:  DAILY INTERVAL: EVERY DAY)
  2. CLINDAMYCIN PHOSPHATE [Suspect]
     Indication: INFECTION
     Dosage: 2400 MG (600 MG, FREQUENCY:QID INTERVAL:  EVERY DAY), INTRAVENOUS
     Route: 042
  3. CLINDAMYCIN HYDROCHLORIDE [Suspect]
     Indication: INFECTION
     Dosage: 1800 MG (450 MG, FREQUENCY:  QID INTERVAL:  EVERY DAY), ORAL
     Route: 048
  4. ATARAX [Concomitant]

REACTIONS (3)
  - BLOOD BILIRUBIN INCREASED [None]
  - INFECTION [None]
  - JAUNDICE [None]
